FAERS Safety Report 10366425 (Version 1)
Quarter: 2014Q1

REPORT INFORMATION
  Report Type: Spontaneous
  Country: US (occurrence: None)
  Receive Date: 20140306
  Receipt Date: 20140306
  Transmission Date: 20141002
  Serious: Yes (Other)
  Sender: FDA-Public Use
  Company Number: 168-21880-13033077

PATIENT
  Age: 58 Year
  Sex: Female
  Weight: 80.29 kg

DRUGS (7)
  1. REVLIMID [Suspect]
     Indication: PLASMA CELL MYELOMA
     Route: 048
     Dates: start: 200908
  2. SIMVASTATIN (SIMVASTATIN) (UNKNOWN) [Concomitant]
  3. MECLIZINE (MECLOZINE) (UNKNOWN) [Concomitant]
  4. PLENDIL (FELODIPINE) (UNKNOWN) [Concomitant]
  5. ASA (ACETYLSALICYLIC ACID) (UNKNOWN) [Concomitant]
  6. SPIRONOLACTONE (SPIRONOLACTONE) (UNKNOWN) [Concomitant]
  7. TENORMIN (ATENOLOL) (UNKNOWN) [Concomitant]

REACTIONS (2)
  - Neutropenia [None]
  - Rash [None]
